FAERS Safety Report 5938759-4 (Version None)
Quarter: 2008Q4

REPORT INFORMATION
  Report Type: 
  Country: None (occurrence: None)
  Receive Date: 20081103
  Receipt Date: 20081027
  Transmission Date: 20090506
  Serious: Yes (Other)
  Sender: FDA-Public Use
  Company Number: NL-BAYER-200821771GPV

PATIENT
  Age: 58 Year
  Sex: Male

DRUGS (9)
  1. NEXAVAR [Suspect]
     Indication: HEPATIC NEOPLASM MALIGNANT
     Route: 048
     Dates: start: 20080625, end: 20080701
  2. NEXAVAR [Suspect]
     Dosage: TOTAL DAILY DOSE: 400 MG
     Route: 048
     Dates: start: 20080701
  3. NEXAVAR [Suspect]
     Dosage: TOTAL DAILY DOSE: 800 MG
     Route: 048
     Dates: start: 20080701
  4. NEXAVAR [Suspect]
     Dosage: TOTAL DAILY DOSE: 800 MG
     Route: 048
     Dates: start: 20081010
  5. NEXAVAR [Suspect]
     Dosage: TOTAL DAILY DOSE: 600 MG
     Route: 048
     Dates: start: 20080701
  6. NEXAVAR [Suspect]
     Dosage: TOTAL DAILY DOSE: 200 MG
     Route: 048
     Dates: start: 20080704, end: 20080101
  7. NEXAVAR [Suspect]
     Dosage: TOTAL DAILY DOSE: 200 MG
     Route: 048
     Dates: start: 20080909, end: 20080923
  8. NEXAVAR [Suspect]
     Route: 048
     Dates: start: 20080923, end: 20081010
  9. MORPHINE PLASTER (NOS) [Concomitant]
     Indication: DRUG USE FOR UNKNOWN INDICATION
     Route: 003

REACTIONS (6)
  - APHASIA [None]
  - GINGIVAL BLEEDING [None]
  - HICCUPS [None]
  - ORAL PAIN [None]
  - PRURITUS [None]
  - VOMITING [None]
